FAERS Safety Report 10168950 (Version 3)
Quarter: 2014Q2

REPORT INFORMATION
  Report Type: Spontaneous
  Country: US (occurrence: None)
  Receive Date: 20140509
  Receipt Date: 20140609
  Transmission Date: 20141212
  Serious: Yes (Hospitalization)
  Sender: FDA-Public Use
  Company Number: UTC-046455

PATIENT
  Age: 66 Year
  Sex: Male
  Weight: 94.8 kg

DRUGS (3)
  1. REMODULIN (10 MILLIGRAM/MILLILITERS, INJECTION FOR INFUSION) (TREPROSTINIL SODIUM) [Suspect]
     Indication: PULMONARY ARTERIAL HYPERTENSION
     Route: 041
     Dates: start: 20100611
  2. REVATIO [Concomitant]
  3. FLOLAN (EPOPROSTENOL) (UNKNOWN) [Concomitant]

REACTIONS (3)
  - Fluid retention [None]
  - Peripheral swelling [None]
  - Fluid overload [None]
